FAERS Safety Report 23171442 (Version 1)
Quarter: 2023Q4

REPORT INFORMATION
  Report Type: Spontaneous
  Country: US (occurrence: US)
  Receive Date: 20231110
  Receipt Date: 20231110
  Transmission Date: 20240109
  Serious: No
  Sender: FDA-Public Use
  Company Number: US-SANOFI-01832977

PATIENT
  Age: 33 Year
  Sex: Female

DRUGS (2)
  1. DUPIXENT [Suspect]
     Active Substance: DUPILUMAB
     Indication: Eczema
     Dosage: 300 MG, QOW
     Route: 058
     Dates: start: 20230506
  2. CERAVE HEALING [Concomitant]
     Active Substance: PETROLATUM

REACTIONS (4)
  - Dry skin [Unknown]
  - Skin atrophy [Unknown]
  - Skin fissures [Unknown]
  - Pain [Unknown]

NARRATIVE: CASE EVENT DATE: 20230101
